FAERS Safety Report 10010797 (Version 1)
Quarter: 2014Q1

REPORT INFORMATION
  Report Type: Spontaneous
  Country: GB (occurrence: None)
  Receive Date: 20140311
  Receipt Date: 20140311
  Transmission Date: 20141002
  Serious: Yes (Other)
  Sender: FDA-Public Use
  Company Number: AUR-APL-2013-09749

PATIENT
  Age: 45 Year
  Sex: Male

DRUGS (3)
  1. RIBAVIRIN [Suspect]
     Indication: HEPATITIS C
  2. INCIVO [Suspect]
     Indication: HEPATITIS C
     Route: 048
     Dates: start: 20131024, end: 20131031
  3. PEGINTERFERON ALFA-2 B [Suspect]
     Indication: HEPATITIS C

REACTIONS (4)
  - Rash generalised [None]
  - Rash pruritic [None]
  - Rash pustular [None]
  - Rash erythematous [None]
